FAERS Safety Report 8129484-2 (Version None)
Quarter: 2012Q1

REPORT INFORMATION
  Report Type: 
  Country: None (occurrence: None)
  Receive Date: 20120210
  Receipt Date: 20120127
  Transmission Date: 20120608
  Serious: Yes (Life-Threatening, Hospitalization, Other)
  Sender: FDA-Public Use
  Company Number: ES-CELGENEUS-144-50794-12013046

PATIENT
  Sex: Male
  Weight: 72 kg

DRUGS (5)
  1. LACTULOSE [Concomitant]
     Indication: CONSTIPATION
     Route: 065
     Dates: start: 20071015
  2. VIDAZA [Suspect]
     Dosage: 75 MILLIGRAM/SQ. METER
     Route: 065
     Dates: start: 20071015, end: 20090514
  3. ACETAMINOPHEN [Concomitant]
     Indication: PAIN
     Route: 065
  4. OMEPRAZOLE [Concomitant]
     Indication: GASTRIC ULCER
     Dosage: 20 MILLIGRAM
     Route: 065
  5. DIETARY FIBER [Concomitant]
     Indication: CONSTIPATION
     Route: 065
     Dates: start: 20071012, end: 20071120

REACTIONS (2)
  - THROMBOCYTOPENIA [None]
  - PILONIDAL CYST [None]
